FAERS Safety Report 6240748-X (Version None)
Quarter: 2009Q2

REPORT INFORMATION
  Report Type: 
  Country: None (occurrence: None)
  Receive Date: 20090619
  Receipt Date: 20090619
  Transmission Date: 20091009
  Serious: Yes (Hospitalization, Other)
  Sender: FDA-Public Use
  Company Number: None

PATIENT
  Sex: Female
  Weight: 70.2622 kg

DRUGS (2)
  1. GAMMAGARD [Suspect]
     Indication: IDIOPATHIC THROMBOCYTOPENIC PURPURA
     Dosage: 73G ONCE IV
     Route: 042
     Dates: start: 20090609, end: 20090609
  2. GAMMAGARD [Suspect]
     Indication: IDIOPATHIC THROMBOCYTOPENIC PURPURA
     Dosage: 73G ONCE IV
     Route: 042
     Dates: start: 20090610, end: 20090610

REACTIONS (5)
  - HAEMATURIA [None]
  - HAEMOLYTIC ANAEMIA [None]
  - NEPHROPATHY [None]
  - RED BLOOD CELL ABNORMALITY [None]
  - RENAL FAILURE ACUTE [None]
